FAERS Safety Report 17362193 (Version 1)
Quarter: 2020Q1

REPORT INFORMATION
  Report Type: Spontaneous
  Country: US (occurrence: US)
  Receive Date: 20200203
  Receipt Date: 20200203
  Transmission Date: 20200409
  Serious: Yes (Hospitalization, Other)
  Sender: FDA-Public Use
  Company Number: US-COSETTE PHARMACEUTICALS INC-CP2020US000003

PATIENT

DRUGS (1)
  1. ALBUTEROL SULFATE. [Suspect]
     Active Substance: ALBUTEROL SULFATE
     Indication: ASTHMA

REACTIONS (5)
  - Respiratory failure [Unknown]
  - Hyperhidrosis [Unknown]
  - Stress cardiomyopathy [Unknown]
  - Asthma [Unknown]
  - Troponin increased [Recovered/Resolved]
